FAERS Safety Report 18340116 (Version 5)
Quarter: 2021Q3

REPORT INFORMATION
  Report Type: Report from Study
  Country: US (occurrence: US)
  Receive Date: 20201002
  Receipt Date: 20210831
  Transmission Date: 20211014
  Serious: Yes (Hospitalization)
  Sender: FDA-Public Use
  Company Number: US-EISAI MEDICAL RESEARCH-EC-2020-073441

PATIENT
  Age: 67 Year
  Sex: Female
  Weight: 92 kg

DRUGS (32)
  1. LENVIMA [Suspect]
     Active Substance: LENVATINIB
     Route: 048
     Dates: start: 20210808
  2. KEYTRUDA [Concomitant]
     Active Substance: PEMBROLIZUMAB
  3. LOW DOSE ASPIRIN [Concomitant]
     Active Substance: ASPIRIN
  4. ATORVASTATIN [Concomitant]
     Active Substance: ATORVASTATIN
  5. COMBIVENT [Concomitant]
     Active Substance: ALBUTEROL SULFATE\IPRATROPIUM BROMIDE
  6. LENVIMA [Suspect]
     Active Substance: LENVATINIB
     Indication: ENDOMETRIAL CANCER
     Route: 048
     Dates: start: 202002
  7. LEVOFLOXACIN. [Concomitant]
     Active Substance: LEVOFLOXACIN
  8. GABAPENTIN. [Concomitant]
     Active Substance: GABAPENTIN
  9. TIZANIDINE HCL [Concomitant]
     Active Substance: TIZANIDINE HYDROCHLORIDE
  10. LOPERAMIDE [Concomitant]
     Active Substance: LOPERAMIDE
  11. TYLENOL EXTRA STRENGTH [Concomitant]
     Active Substance: ACETAMINOPHEN
  12. CIPROFLOXACIN. [Concomitant]
     Active Substance: CIPROFLOXACIN
  13. METOPROLOL. [Concomitant]
     Active Substance: METOPROLOL
  14. HYDROCORTISONE. [Concomitant]
     Active Substance: HYDROCORTISONE
  15. DIGOXIN. [Concomitant]
     Active Substance: DIGOXIN
  16. GLIPIZIDE?METFORMIN [Concomitant]
     Active Substance: GLIPIZIDE\METFORMIN HYDROCHLORIDE
  17. IMODIUM [Concomitant]
     Active Substance: LOPERAMIDE HYDROCHLORIDE
  18. METFORMIN HCL [Concomitant]
     Active Substance: METFORMIN HYDROCHLORIDE
  19. NITROFURANTOIN. [Concomitant]
     Active Substance: NITROFURANTOIN
  20. ONDANSETRON [Concomitant]
     Active Substance: ONDANSETRON
  21. LENVIMA [Suspect]
     Active Substance: LENVATINIB
     Indication: METASTASES TO BONE
     Route: 048
     Dates: start: 20210210, end: 20210726
  22. NASACORT [Concomitant]
     Active Substance: TRIAMCINOLONE ACETONIDE
  23. PANTOPRAZOLE [Concomitant]
     Active Substance: PANTOPRAZOLE
  24. CLARITIN [Concomitant]
     Active Substance: LORATADINE
  25. NITROSTAT [Concomitant]
     Active Substance: NITROGLYCERIN
  26. CARISOPRODOL. [Concomitant]
     Active Substance: CARISOPRODOL
  27. OXYCODONE HYDROCHLORIDE. [Concomitant]
     Active Substance: OXYCODONE HYDROCHLORIDE
  28. VITAMIN B12 [Concomitant]
     Active Substance: CYANOCOBALAMIN
  29. CELECOXIB. [Concomitant]
     Active Substance: CELECOXIB
  30. CELEBREX [Concomitant]
     Active Substance: CELECOXIB
  31. LEVOTHYROXINE SODIUM. [Concomitant]
     Active Substance: LEVOTHYROXINE SODIUM
  32. KLOR?CON [Concomitant]
     Active Substance: POTASSIUM CHLORIDE

REACTIONS (21)
  - Vomiting [Unknown]
  - Blood pressure increased [Recovered/Resolved]
  - Hallucination [Unknown]
  - Chromaturia [Unknown]
  - Diarrhoea [Not Recovered/Not Resolved]
  - Dysuria [Unknown]
  - Headache [Unknown]
  - Nausea [Unknown]
  - Stomatitis [Unknown]
  - Back pain [Unknown]
  - Malignant neoplasm progression [Unknown]
  - Taste disorder [Unknown]
  - Hypophagia [Unknown]
  - Muscle spasms [Unknown]
  - Urine output decreased [Unknown]
  - Dehydration [Unknown]
  - Abdominal mass [Unknown]
  - Renal impairment [Unknown]
  - Decreased appetite [Recovering/Resolving]
  - Weight decreased [Not Recovered/Not Resolved]
  - Abdominal pain upper [Unknown]

NARRATIVE: CASE EVENT DATE: 2020
